FAERS Safety Report 6553784-0 (Version None)
Quarter: 2010Q1

REPORT INFORMATION
  Report Type: 
  Country: None (occurrence: None)
  Receive Date: 20100125
  Receipt Date: 20100125
  Transmission Date: 20100710
  Serious: No
  Sender: FDA-Public Use
  Company Number: None

PATIENT
  Age: 47 Year
  Sex: Female
  Weight: 54.4316 kg

DRUGS (1)
  1. FORTEO [Suspect]
     Indication: OSTEOPOROSIS
     Dosage: 20MCG/DOSE EVERY DAY SUB Q SELF-INJ.
     Route: 058
     Dates: start: 20091028

REACTIONS (5)
  - GASTROINTESTINAL DISORDER [None]
  - NAUSEA [None]
  - PRODUCT ODOUR ABNORMAL [None]
  - RHINITIS [None]
  - VOMITING [None]
